FAERS Safety Report 18766099 (Version 2)
Quarter: 2021Q1

REPORT INFORMATION
  Report Type: Report from Study
  Country: None (occurrence: CA)
  Receive Date: 20210120
  Receipt Date: 20210208
  Transmission Date: 20210419
  Serious: Yes (Death, Hospitalization, Other)
  Sender: FDA-Public Use
  Company Number: CA-ABBVIE-21K-028-3736731-00

PATIENT
  Age: 67 Year
  Sex: Female

DRUGS (1)
  1. RINVOQ [Suspect]
     Active Substance: UPADACITINIB
     Indication: PRODUCT USED FOR UNKNOWN INDICATION
     Route: 048
     Dates: start: 20200924

REACTIONS (4)
  - Acute respiratory failure [Unknown]
  - Atrial fibrillation [Unknown]
  - Pneumonia [Unknown]
  - COVID-19 [Fatal]

NARRATIVE: CASE EVENT DATE: 20210106
